FAERS Safety Report 9293637 (Version 2)
Quarter: 2013Q2

REPORT INFORMATION
  Report Type: Report from Study
  Country: US (occurrence: US)
  Receive Date: 20130516
  Receipt Date: 20130529
  Transmission Date: 20140414
  Serious: Yes (Hospitalization, Other)
  Sender: FDA-Public Use
  Company Number: US-CELGENEUS-163-21880-13051374

PATIENT
  Age: 53 Year
  Sex: Male

DRUGS (4)
  1. REVLIMID [Suspect]
     Indication: NON-HODGKIN^S LYMPHOMA
     Dosage: 10 MILLIGRAM
     Route: 048
     Dates: start: 20110702, end: 20120725
  2. REVLIMID [Suspect]
     Dosage: 5 MILLIGRAM
     Route: 048
     Dates: start: 20120911, end: 20130129
  3. OFATUMUMAB [Suspect]
     Indication: NON-HODGKIN^S LYMPHOMA
     Dosage: 1 GRAM
     Route: 041
     Dates: start: 20110701, end: 20110817
  4. OFATUMUMAB [Suspect]
     Dosage: 1 GRAM
     Route: 041
     Dates: end: 201301

REACTIONS (4)
  - Myelodysplastic syndrome [Unknown]
  - Chest pain [Recovered/Resolved]
  - Dizziness [Recovered/Resolved]
  - Orthostatic hypotension [Recovered/Resolved]
